FAERS Safety Report 20445952 (Version 2)
Quarter: 2022Q1

REPORT INFORMATION
  Report Type: Spontaneous
  Country: US (occurrence: None)
  Receive Date: 20220208
  Receipt Date: 20220321
  Transmission Date: 20220423
  Serious: Yes (Hospitalization, Other)
  Sender: FDA-Public Use
  Company Number: 2022A052644

PATIENT
  Age: 23393 Day
  Sex: Female
  Weight: 88.5 kg

DRUGS (1)
  1. EVUSHELD [Suspect]
     Active Substance: CILGAVIMAB\TIXAGEVIMAB
     Indication: Immunisation
     Dosage: 150MG OF CILGAVIMAB, 150MG OF TIXAGEVIMAB
     Route: 030
     Dates: start: 20220128

REACTIONS (4)
  - Chest pain [Unknown]
  - Abdominal pain [Unknown]
  - Blood pressure abnormal [Unknown]
  - Renal aneurysm [Unknown]

NARRATIVE: CASE EVENT DATE: 20220128
